FAERS Safety Report 5663723-2 (Version None)
Quarter: 2008Q1

REPORT INFORMATION
  Report Type: 
  Country: None (occurrence: None)
  Receive Date: 20080307
  Receipt Date: 20080225
  Transmission Date: 20080703
  Serious: Yes (Other)
  Sender: FDA-Public Use
  Company Number: B0510496A

PATIENT
  Sex: 0

DRUGS (2)
  1. AVANDIA [Suspect]
  2. WARFARIN SODIUM [Suspect]
     Indication: DRUG DISPENSING ERROR
     Dosage: 4 MG / PER DAY / ORAL
     Route: 048

REACTIONS (4)
  - DRUG DISPENSING ERROR [None]
  - INTESTINAL HAEMORRHAGE [None]
  - MEDICATION ERROR [None]
  - WRONG DRUG ADMINISTERED [None]
